FAERS Safety Report 8292465-2 (Version None)
Quarter: 2012Q2

REPORT INFORMATION
  Report Type: 
  Country: None (occurrence: None)
  Receive Date: 20120417
  Receipt Date: 20110406
  Transmission Date: 20120825
  Serious: No
  Sender: FDA-Public Use
  Company Number: US-ASTRAZENECA-2011SE20024

PATIENT
  Age: 83 Year
  Sex: Female

DRUGS (2)
  1. DIOVAN [Concomitant]
  2. NEXIUM [Suspect]
     Route: 048

REACTIONS (7)
  - GAIT DISTURBANCE [None]
  - HEADACHE [None]
  - HIATUS HERNIA [None]
  - DRUG DOSE OMISSION [None]
  - FEAR OF EATING [None]
  - VISUAL IMPAIRMENT [None]
  - MALAISE [None]
